FAERS Safety Report 24426608 (Version 2)
Quarter: 2024Q4

REPORT INFORMATION
  Report Type: Other
  Country: GB (occurrence: GB)
  Receive Date: 20241011
  Receipt Date: 20241106
  Transmission Date: 20250114
  Serious: Yes (Congenital Anomaly, Other)
  Sender: ZYDUS PHARM
  Company Number: None

PATIENT

DRUGS (5)
  1. TOPIRAMATE [Suspect]
     Active Substance: TOPIRAMATE
     Indication: Epilepsy
     Dosage: 500 MG ONCE DAILY (200MG IN THE MORNING AND 300MG AT NIGHT).
     Route: 065
  2. TOPIRAMATE [Suspect]
     Active Substance: TOPIRAMATE
     Dosage: 350 MG ONCE DAILY (200 MG IN THE MORNING AND 300 MG AT NIGHT,CURRENTLY ON REDUCING DOSE REGIME BY 50
     Route: 065
     Dates: start: 2018
  3. FOLIC ACID [Concomitant]
     Active Substance: FOLIC ACID
     Indication: Vitamin supplementation
     Dosage: 5 MILLIGRAM, QD
     Route: 065
  4. BRIVARACETAM [Concomitant]
     Active Substance: BRIVARACETAM
     Indication: Epilepsy
     Dosage: 50 MILLIGRAM, BID, ~INCREASE FURTHER IF THERE ARE FURTHER SEIZURES
     Route: 065
     Dates: start: 20240822
  5. LEVETIRACETAM [Concomitant]
     Active Substance: LEVETIRACETAM
     Indication: Epilepsy
     Dosage: UNK UNK, BID
     Route: 065
     Dates: start: 20240424, end: 20240823

REACTIONS (2)
  - Unintended pregnancy [Not Recovered/Not Resolved]
  - Maternal exposure during pregnancy [Unknown]
